FAERS Safety Report 17030260 (Version 1)
Quarter: 2019Q4

REPORT INFORMATION
  Report Type: Spontaneous
  Country: CN (occurrence: CN)
  Receive Date: 20191114
  Receipt Date: 20191114
  Transmission Date: 20200122
  Serious: Yes (Other)
  Sender: FDA-Public Use
  Company Number: CN-ROCHE-2461712

PATIENT
  Age: 62 Year
  Sex: Male

DRUGS (3)
  1. CYCLOSPORINE. [Concomitant]
     Active Substance: CYCLOSPORINE
     Indication: IMMUNOSUPPRESSION
     Route: 065
  2. CELLCEPT [Suspect]
     Active Substance: MYCOPHENOLATE MOFETIL\MYCOPHENOLATE MOFETIL HYDROCHLORIDE
     Indication: IMMUNOSUPPRESSION
     Route: 065
  3. METHYLPREDNISOLONE. [Concomitant]
     Active Substance: METHYLPREDNISOLONE
     Indication: IMMUNOSUPPRESSION

REACTIONS (3)
  - Chronic allograft nephropathy [Unknown]
  - Pneumonia [Recovered/Resolved]
  - Femoral neck fracture [Recovered/Resolved]
